FAERS Safety Report 24078345 (Version 1)
Quarter: 2024Q3

REPORT INFORMATION
  Report Type: Spontaneous
  Country: BH (occurrence: BH)
  Receive Date: 20240711
  Receipt Date: 20240711
  Transmission Date: 20241017
  Serious: Yes (Hospitalization)
  Sender: STRIDES
  Company Number: BH-STRIDES ARCOLAB LIMITED-2024SP008018

PATIENT
  Age: 11 Year
  Sex: Male

DRUGS (10)
  1. IBUPROFEN [Suspect]
     Active Substance: IBUPROFEN
     Indication: Migraine with aura
     Dosage: UNK
     Route: 065
  2. TOPIRAMATE [Suspect]
     Active Substance: TOPIRAMATE
     Indication: Migraine with aura
     Dosage: UNK
     Route: 065
  3. PROMETHAZINE HYDROCHLORIDE [Suspect]
     Active Substance: PROMETHAZINE HYDROCHLORIDE
     Indication: Migraine with aura
     Dosage: UNK
     Route: 065
  4. MORPHINE SULFATE [Suspect]
     Active Substance: MORPHINE SULFATE
     Indication: Migraine with aura
     Dosage: UNK
     Route: 065
  5. OXYCODONE [Suspect]
     Active Substance: OXYCODONE
     Indication: Migraine with aura
     Dosage: UNK
     Route: 065
  6. TRAMADOL [Suspect]
     Active Substance: TRAMADOL\TRAMADOL HYDROCHLORIDE
     Indication: Migraine with aura
     Dosage: UNK
     Route: 065
  7. ACETAMINOPHEN [Suspect]
     Active Substance: ACETAMINOPHEN
     Indication: Migraine with aura
     Dosage: UNK
     Route: 065
  8. ASPIRIN [Suspect]
     Active Substance: ASPIRIN
     Indication: Migraine with aura
     Dosage: UNK
     Route: 065
  9. SUMATRIPTAN [Suspect]
     Active Substance: SUMATRIPTAN
     Indication: Migraine with aura
     Dosage: UNK
     Route: 065
  10. FENTANYL [Suspect]
     Active Substance: FENTANYL\FENTANYL CITRATE
     Indication: Migraine with aura
     Dosage: UNK
     Route: 065

REACTIONS (2)
  - Treatment failure [Unknown]
  - Off label use [Unknown]
